FAERS Safety Report 15087507 (Version 1)
Quarter: 2018Q2

REPORT INFORMATION
  Report Type: Spontaneous
  Country: US (occurrence: US)
  Receive Date: 20180628
  Receipt Date: 20180628
  Transmission Date: 20180711
  Serious: No
  Sender: FDA-Public Use
  Company Number: US-009507513-1805USA015149

PATIENT
  Sex: Female

DRUGS (2)
  1. ZEMURON [Suspect]
     Active Substance: ROCURONIUM BROMIDE
     Indication: ANAESTHESIA
     Dosage: 2.28 (2.00-3.00) MG, UNK (STRENGTH: 1.5 MG/KG)
     Route: 042
  2. FENTANYL. [Concomitant]
     Active Substance: FENTANYL
     Indication: ANAESTHESIA
     Dosage: 1.50 (1.00-1.91) MICROGRAM, UNK (STRENGTH: 1 MICROGRAM/KG)
     Route: 042

REACTIONS (1)
  - Exposure during pregnancy [Unknown]
